FAERS Safety Report 17537755 (Version 1)
Quarter: 2020Q1

REPORT INFORMATION
  Report Type: Spontaneous
  Country: US (occurrence: US)
  Receive Date: 20200305
  Receipt Date: 20200305
  Transmission Date: 20200409
  Serious: No
  Sender: FDA-Public Use
  Company Number: None

PATIENT
  Age: 66 Year
  Sex: Female

DRUGS (1)
  1. XALKORI [Suspect]
     Active Substance: CRIZOTINIB
     Route: 048
     Dates: start: 201908

REACTIONS (3)
  - Pulmonary oedema [None]
  - Oedema peripheral [None]
  - Deep vein thrombosis [None]

NARRATIVE: CASE EVENT DATE: 20200305
